FAERS Safety Report 11031852 (Version 1)
Quarter: 2015Q2

REPORT INFORMATION
  Report Type: Other
  Country: GB (occurrence: GB)
  Receive Date: 20150415
  Receipt Date: 20150415
  Transmission Date: 20150821
  Serious: Yes (Other)
  Sender: FDA-Public Use
  Company Number: GB-APOTEX-2015AP008160

PATIENT
  Age: 37 Year
  Sex: Male
  Weight: 83 kg

DRUGS (1)
  1. PAXIL [Suspect]
     Active Substance: PAROXETINE HYDROCHLORIDE
     Indication: PANIC ATTACK
     Dosage: 50 MG, UNK
     Route: 048
     Dates: start: 19970404

REACTIONS (1)
  - Panic disorder with agoraphobia [Not Recovered/Not Resolved]

NARRATIVE: CASE EVENT DATE: 20140415
